FAERS Safety Report 4586875-4 (Version None)
Quarter: 2005Q1

REPORT INFORMATION
  Report Type: 
  Country: None (occurrence: None)
  Receive Date: 20050218
  Receipt Date: 20040601
  Transmission Date: 20050727
  Serious: Yes (Death, Life-Threatening)
  Sender: FDA-Public Use
  Company Number: PHHO2004JP07912

PATIENT
  Age: 55 Year
  Sex: Female
  Weight: 57 kg

DRUGS (14)
  1. METHYLPREDNISOLONE ACETATE [Concomitant]
     Dosage: NOT REPORTED
     Route: 042
     Dates: start: 20040511
  2. PANSPORIN [Concomitant]
     Dosage: 2 G DAILY
     Route: 042
     Dates: start: 20040510, end: 20040512
  3. MEROPEN [Concomitant]
     Dosage: 1 G DAILY
     Route: 042
     Dates: start: 20040510
  4. DIFLUCAN [Concomitant]
     Dosage: 100 MG DAILY
     Route: 042
     Dates: start: 20040511, end: 20040514
  5. FUNGUARD [Concomitant]
     Dosage: 150 MG DAILY
     Route: 042
     Dates: start: 20040514
  6. BACTRAMIN [Concomitant]
     Dosage: NOT REPORTED
     Route: 042
     Dates: start: 20040514, end: 20040520
  7. HABEKACIN [Concomitant]
     Dosage: 100 MG DAILY
     Route: 042
     Dates: start: 20040521
  8. GASTER [Concomitant]
     Dosage: 40 MG DAILY
     Route: 042
     Dates: start: 20040510
  9. PROGRAF [Suspect]
     Indication: LUNG TRANSPLANT
     Dosage: 4 MG DAILY
     Route: 048
     Dates: start: 20040515, end: 20040526
  10. CELLCEPT [Suspect]
     Indication: LUNG TRANSPLANT
     Dosage: 1.5 G DAILY
     Route: 048
     Dates: start: 20040515, end: 20040526
  11. NEORAL [Suspect]
     Indication: LUNG TRANSPLANT
     Dosage: 100 MG - 275 MG
     Route: 048
     Dates: start: 20040510, end: 20040514
  12. IMURAN [Suspect]
     Indication: LUNG TRANSPLANT
     Dosage: 75 MG DAILY
     Route: 048
     Dates: start: 20040511, end: 20040514
  13. PREDONINE [Suspect]
     Indication: LUNG TRANSPLANT
     Dosage: 5 MG DAILY
     Route: 048
     Dates: start: 20040516, end: 20040522
  14. ORTHOCLONE OKT3 [Suspect]
     Indication: LUNG TRANSPLANT
     Dosage: NOT REPORTED
     Route: 065

REACTIONS (5)
  - LUNG TRANSPLANT REJECTION [None]
  - PULMONARY OEDEMA [None]
  - RENAL FAILURE [None]
  - RESPIRATORY FAILURE [None]
  - TYPE IV HYPERSENSITIVITY REACTION [None]
